FAERS Safety Report 4782514-8 (Version None)
Quarter: 2005Q3

REPORT INFORMATION
  Report Type: 
  Country: None (occurrence: None)
  Receive Date: 20050929
  Receipt Date: 20050202
  Transmission Date: 20060218
  Serious: Yes (Hospitalization)
  Sender: FDA-Public Use
  Company Number: 394674

PATIENT
  Age: 80 Year
  Sex: Female

DRUGS (5)
  1. COREG [Suspect]
     Indication: DRUG USE FOR UNKNOWN INDICATION
     Route: 048
  2. ALTACE [Concomitant]
  3. METFORMIN [Concomitant]
  4. PRANDIN [Concomitant]
  5. PRAVACHOL [Concomitant]

REACTIONS (6)
  - AFFECT LABILITY [None]
  - HYPERGLYCAEMIA [None]
  - INSOMNIA [None]
  - MOOD SWINGS [None]
  - NERVOUSNESS [None]
  - THINKING ABNORMAL [None]
